FAERS Safety Report 8016295-1 (Version None)
Quarter: 2011Q4

REPORT INFORMATION
  Report Type: 
  Country: None (occurrence: None)
  Receive Date: 20111227
  Receipt Date: 20111209
  Transmission Date: 20120403
  Serious: Yes (Other)
  Sender: FDA-Public Use
  Company Number: 021197

PATIENT
  Age: 72 Year
  Sex: Male
  Weight: 59 kg

DRUGS (15)
  1. MUCOSTA (REBAMIPIDE) [Concomitant]
  2. JUVELA (TOCOPHEROL) [Concomitant]
  3. ADONA (CARBAZOCHROME SODIUM SULFONATE) [Concomitant]
  4. MIKELAN (CARTELOL HYDROCHLORIDE) [Concomitant]
  5. MACUGEN [Suspect]
     Indication: MACULAR OEDEMA
     Dosage: 0.3 MG INTO THE LEFT EYE, INTRAOCULAR
     Route: 031
  6. CARNACULIN (PANCREAS EXTRACT) [Concomitant]
  7. DIAMOX [Concomitant]
  8. ASPARA K (ASPARTATE POTASSIUM) [Concomitant]
  9. METHYCOBAL (MECOBALAMIN) [Concomitant]
  10. TRUSOPT [Concomitant]
  11. RINDERON A (BETAMETHASONE SODIUM PHOSPHATE, NEOMYCIN SULFATE) [Concomitant]
  12. LOMEFLOXACIN HYDROCHLORIDE (LOMEFLOXACIN HYDROCHLORIDE) [Concomitant]
  13. HYALONSAN (HYALURONIC ACID) [Concomitant]
  14. BRONUCK (BROMFENAC SODIUM) [Concomitant]
  15. XALATAN [Concomitant]

REACTIONS (2)
  - INTRAOCULAR PRESSURE INCREASED [None]
  - GASTRITIS [None]
